FAERS Safety Report 9228701 (Version 3)
Quarter: 2013Q4

REPORT INFORMATION
  Report Type: Spontaneous
  Country: US (occurrence: US)
  Receive Date: 20130412
  Receipt Date: 20131205
  Transmission Date: 20140711
  Serious: Yes (Other)
  Sender: FDA-Public Use
  Company Number: US-BAYER-2013-045545

PATIENT
  Age: 44 Year
  Sex: Female
  Weight: 77.1 kg

DRUGS (8)
  1. OCELLA [Suspect]
     Indication: PREMENSTRUAL SYNDROME
     Dosage: UNK
     Dates: start: 200410, end: 201107
  2. OCELLA [Suspect]
     Indication: OVARIAN CYST
  3. LEVOTHYROXINE [Concomitant]
  4. OMEPRAZOLE [Concomitant]
  5. PROPRANOLOL [Concomitant]
     Dosage: 60 MG, UNK
  6. SYNTHROID [Concomitant]
     Indication: HYPOTHYROIDISM
     Dosage: UNK
     Dates: start: 200502
  7. MAXALT [Concomitant]
     Dosage: 10 MG, UNK
     Dates: start: 201002, end: 201107
  8. RANITIDINE [Concomitant]
     Dosage: 150 MG, UNK

REACTIONS (11)
  - Deep vein thrombosis [Recovering/Resolving]
  - Thrombosis [None]
  - Abdominal pain [None]
  - Injury [Recovering/Resolving]
  - Pain [Recovering/Resolving]
  - General physical health deterioration [Recovering/Resolving]
  - Emotional distress [None]
  - Anxiety [None]
  - Pain [None]
  - Mental disorder [None]
  - Off label use [None]
